FAERS Safety Report 4929920-6 (Version None)
Quarter: 2006Q1

REPORT INFORMATION
  Report Type: 
  Country: None (occurrence: None)
  Receive Date: 20060301
  Receipt Date: 20051102
  Transmission Date: 20060701
  Serious: Yes (Death)
  Sender: FDA-Public Use
  Company Number: US-MERCK-0511USA00645

PATIENT
  Age: 61 Year
  Sex: Female
  Weight: 111 kg

DRUGS (11)
  1. VIOXX [Suspect]
     Indication: LUMBAR SPINAL STENOSIS
     Route: 048
     Dates: start: 20000101, end: 20010219
  2. VIOXX [Suspect]
     Indication: INTERVERTEBRAL DISC DEGENERATION
     Route: 048
     Dates: start: 20000101, end: 20010219
  3. METOPROLOL [Concomitant]
     Route: 065
  4. ASPIRIN [Concomitant]
     Route: 065
  5. AVAPRO [Concomitant]
     Route: 065
  6. SPIRONOLACTONE [Concomitant]
     Route: 065
  7. CARDENE SR [Concomitant]
     Indication: HYPERTENSION
     Route: 065
  8. LIPITOR [Concomitant]
     Indication: BLOOD CHOLESTEROL INCREASED
     Route: 065
  9. NIASPAN [Concomitant]
     Route: 065
  10. CLARITIN [Concomitant]
     Indication: HYPERSENSITIVITY
     Route: 065
  11. VIVELLE [Concomitant]
     Indication: HORMONE REPLACEMENT THERAPY
     Route: 065

REACTIONS (8)
  - CORONARY ARTERY DISEASE [None]
  - CYST [None]
  - DYSPHAGIA [None]
  - DYSPNOEA EXERTIONAL [None]
  - HYPERLIPIDAEMIA [None]
  - HYPERTENSION [None]
  - MYOCARDIAL INFARCTION [None]
  - URINARY INCONTINENCE [None]
